FAERS Safety Report 15965676 (Version 4)
Quarter: 2019Q3

REPORT INFORMATION
  Report Type: Report from Study
  Country: US (occurrence: US)
  Receive Date: 20190215
  Receipt Date: 20190716
  Transmission Date: 20191004
  Serious: Yes (Other)
  Sender: FDA-Public Use
  Company Number: US-ROCHE-2261807

PATIENT
  Age: 43 Year
  Sex: Female
  Weight: 61.2 kg

DRUGS (11)
  1. METHYLPREDNISOLONE. [Suspect]
     Active Substance: METHYLPREDNISOLONE
     Indication: PREMEDICATION
     Dosage: DATE OF MOST RECENT DOSE OF METHYLPREDNISOLONE PRIOR TO AE ONSET: 22/OCT/2018
     Route: 042
     Dates: start: 20161021
  2. DIPHTHERIA VACCINE;PERTUSSIS VACCINE;TETANUS VACCINE [Suspect]
     Active Substance: DIPHTHERIA AND TETANUS TOXOIDS AND PERTUSSIS VACCINE
     Indication: PROPHYLAXIS
     Dosage: DATE OF MOST RECENT DOSE OF TETANUS, DIPHTHERIA AND PERTUSSIS PRIOR TO AE ONSET: 26/JUL/2016
     Route: 030
     Dates: start: 20160726
  3. PNEUMOCOCCAL VACCINE POLYVALENT NOS [Suspect]
     Active Substance: PNEUMOCOCCAL VACCINE POLYVALENT
     Indication: PNEUMOCOCCAL IMMUNISATION
     Dosage: DATE OF MOST RECENT DOSE OF 23-PPV PRIOR TO AE ONSET: 23/AUG/2016
     Route: 030
     Dates: start: 20160823
  4. GABAPENTIN. [Concomitant]
     Active Substance: GABAPENTIN
     Indication: NEURALGIA
  5. INFLUENZA VIRUS VACCINE [Suspect]
     Active Substance: INFLUENZA VIRUS VACCINE
     Indication: INFLUENZA IMMUNISATION
     Dosage: DATE OF MOST RECENT DOSE OF INFLUENZA VACCINE PRIOR TO AE ONSET: 20/SEP/2016
     Route: 030
     Dates: start: 20160920
  6. BENADRYL [Concomitant]
     Active Substance: DIPHENHYDRAMINE HYDROCHLORIDE
     Indication: PREMEDICATION
     Route: 048
     Dates: start: 20161021
  7. GABAPENTIN. [Concomitant]
     Active Substance: GABAPENTIN
     Indication: NEURALGIA
     Route: 048
     Dates: start: 20181106
  8. OCRELIZUMAB. [Suspect]
     Active Substance: OCRELIZUMAB
     Indication: RELAPSING-REMITTING MULTIPLE SCLEROSIS
     Dosage: DATE OF MOST RECENT DOSE OF OCRELIZUMAB PRIOR TO AE ONSET: 22/OCT/2018?AT A DOSE OF 600 MG, WITH THE
     Route: 042
     Dates: start: 20161021
  9. IMMUNOCYANINE [Suspect]
     Active Substance: KEYHOLE LIMPET HEMOCYANIN
     Indication: IMMUNE ENHANCEMENT THERAPY
     Dosage: DATE OF MOST RECENT DOSE OF KLH PRIOR TO AE ONSET: 20/SEP/2016 (1 MG)
     Route: 058
     Dates: start: 20160726
  10. TYLENOL [Concomitant]
     Active Substance: ACETAMINOPHEN
     Indication: PREMEDICATION
     Route: 048
     Dates: start: 20161021
  11. GABAPENTIN. [Concomitant]
     Active Substance: GABAPENTIN
     Indication: SCIATICA

REACTIONS (1)
  - Lobular breast carcinoma in situ [Not Recovered/Not Resolved]

NARRATIVE: CASE EVENT DATE: 20181126
